FAERS Safety Report 9548111 (Version 1)
Quarter: 2013Q3

REPORT INFORMATION
  Report Type: Spontaneous
  Country: FR (occurrence: FR)
  Receive Date: 20130924
  Receipt Date: 20130924
  Transmission Date: 20140515
  Serious: Yes (Hospitalization)
  Sender: FDA-Public Use
  Company Number: FR-ROCHE-1279656

PATIENT
  Age: 39 Year
  Sex: Male

DRUGS (7)
  1. MABTHERA [Suspect]
     Indication: SCLERODERMA
     Route: 042
     Dates: start: 20130611
  2. MABTHERA [Suspect]
     Route: 042
     Dates: start: 20130620
  3. MABTHERA [Suspect]
     Route: 042
     Dates: start: 20130628
  4. MABTHERA [Suspect]
     Route: 011
     Dates: start: 20130703
  5. MIOREL (FRANCE) [Suspect]
     Indication: PRODUCT USED FOR UNKNOWN INDICATION
     Route: 048
  6. CETIRIZINE DIHYDROCHLORIDE [Suspect]
     Indication: PRODUCT USED FOR UNKNOWN INDICATION
     Route: 048
  7. PARACETAMOL [Suspect]
     Indication: PRODUCT USED FOR UNKNOWN INDICATION
     Route: 048

REACTIONS (1)
  - Retinal artery occlusion [Recovered/Resolved with Sequelae]
